FAERS Safety Report 9767862 (Version 3)
Quarter: 2014Q1

REPORT INFORMATION
  Report Type: Spontaneous
  Country: US (occurrence: None)
  Receive Date: 20131213
  Receipt Date: 20140128
  Transmission Date: 20141002
  Serious: Yes (Other)
  Sender: FDA-Public Use
  Company Number: AEGR000222

PATIENT
  Age: 71 Year
  Sex: Female
  Weight: 66.2 kg

DRUGS (5)
  1. JUXTAPID [Suspect]
     Indication: TYPE IIA HYPERLIPIDAEMIA
     Route: 048
     Dates: start: 20131021, end: 201311
  2. ASA (ACETYLSALICYLIC ACID) [Concomitant]
  3. PLAVIX (CLOPIDOGREL BISULFATE) [Concomitant]
  4. FISH OIL (FISH OIL) [Concomitant]
  5. VITAMIN E (TOCOPHERYL ACID SUCCINATE) [Concomitant]

REACTIONS (10)
  - Pain in extremity [None]
  - Local swelling [None]
  - Condition aggravated [None]
  - Abdominal distension [None]
  - Flatulence [None]
  - Catheterisation cardiac [None]
  - Abdominal pain lower [None]
  - Abdominal pain upper [None]
  - Local swelling [None]
  - Back pain [None]
